FAERS Safety Report 9142784 (Version 1)
Quarter: 2013Q1

REPORT INFORMATION
  Report Type: Spontaneous
  Country: CA (occurrence: CA)
  Receive Date: 20130306
  Receipt Date: 20130306
  Transmission Date: 20140127
  Serious: Yes (Other)
  Sender: FDA-Public Use
  Company Number: CA-ELI_LILLY_AND_COMPANY-CA201302008847

PATIENT
  Sex: Female

DRUGS (1)
  1. HUMALOG LISPRO [Suspect]
     Indication: TYPE 1 DIABETES MELLITUS
     Dosage: 34 U, PRN
     Dates: start: 1996

REACTIONS (4)
  - Cardiac disorder [Not Recovered/Not Resolved]
  - Breast cancer [Recovered/Resolved]
  - Sarcoidosis [Recovered/Resolved]
  - Pneumonia viral [Unknown]
